FAERS Safety Report 5895432-9 (Version None)
Quarter: 2008Q3

REPORT INFORMATION
  Report Type: 
  Country: None (occurrence: None)
  Receive Date: 20080923
  Receipt Date: 20080923
  Transmission Date: 20090109
  Serious: Yes (Life-Threatening, Hospitalization)
  Sender: FDA-Public Use
  Company Number: None

PATIENT
  Age: 62 Year
  Sex: Male
  Weight: 79.3795 kg

DRUGS (1)
  1. ARICEPT [Suspect]
     Indication: AMNESIA
     Dosage: ONE 5MG. TABLET ONCE A DAY AT P.M.
     Dates: start: 20080527, end: 20080827

REACTIONS (21)
  - AGGRESSION [None]
  - ARTHRALGIA [None]
  - ASTHENIA [None]
  - CHEST PAIN [None]
  - DYSSTASIA [None]
  - GENERAL PHYSICAL CONDITION ABNORMAL [None]
  - HYPOAESTHESIA [None]
  - IRRITABILITY [None]
  - MALAISE [None]
  - MOVEMENT DISORDER [None]
  - MUSCLE ATROPHY [None]
  - NAUSEA [None]
  - NIGHT SWEATS [None]
  - NIGHTMARE [None]
  - PYREXIA [None]
  - RENAL DISORDER [None]
  - TONGUE OEDEMA [None]
  - TOOTHACHE [None]
  - TREMOR [None]
  - URINARY TRACT INFECTION [None]
  - VIRAL INFECTION [None]
